FAERS Safety Report 8521254-6 (Version None)
Quarter: 2012Q3

REPORT INFORMATION
  Report Type: 
  Country: None (occurrence: None)
  Receive Date: 20120719
  Receipt Date: 20120710
  Transmission Date: 20120928
  Serious: Yes (Other)
  Sender: FDA-Public Use
  Company Number: US-ASTRAZENECA-2012SE48026

PATIENT
  Age: 39 Year
  Sex: Female

DRUGS (3)
  1. CLONIDINE [Concomitant]
  2. SYMBICORT [Suspect]
     Indication: ASTHMA
     Dosage: 2 PUFFS, TWO TIMES PER DAY
     Route: 055
     Dates: start: 19990101
  3. CLARITIN [Concomitant]

REACTIONS (6)
  - PITUITARY TUMOUR [None]
  - LIGAMENT RUPTURE [None]
  - GLUCOSE TOLERANCE IMPAIRED [None]
  - PANIC ATTACK [None]
  - CARPAL TUNNEL SYNDROME [None]
  - HYPERTENSION [None]
